FAERS Safety Report 11664841 (Version 22)
Quarter: 2019Q3

REPORT INFORMATION
  Report Type: Report from Study
  Country: CR (occurrence: CR)
  Receive Date: 20151027
  Receipt Date: 20190704
  Transmission Date: 20191004
  Serious: Yes (Other)
  Sender: FDA-Public Use
  Company Number: PHHY2015CR136884

PATIENT
  Age: 45 Year
  Sex: Female
  Weight: 60.5 kg

DRUGS (16)
  1. ESTROGEN [Concomitant]
     Active Substance: ESTROGENS
     Indication: PRODUCT USED FOR UNKNOWN INDICATION
     Dosage: 1 DF, QD
     Route: 048
  2. SANDOSTATIN LAR DEPOT [Suspect]
     Active Substance: OCTREOTIDE ACETATE
     Dosage: 40 MG, QMO (EVERY 28 DAYS)
     Route: 030
  3. SANDOSTATIN LAR DEPOT [Suspect]
     Active Substance: OCTREOTIDE ACETATE
     Dosage: 30 MG, UNK
     Route: 030
     Dates: start: 20190409
  4. CIMETIDINE [Concomitant]
     Active Substance: CIMETIDINE
     Indication: PRODUCT USED FOR UNKNOWN INDICATION
     Route: 065
  5. EUTIROX [Concomitant]
     Active Substance: LEVOTHYROXINE SODIUM
     Indication: PRODUCT USED FOR UNKNOWN INDICATION
     Dosage: 100 MG, UNK (1 TABLET ORALLY FROM MONDAY TO SATURDAY OF 100MG; 2 TABLETS ON SUNDAY OF 100MG)
     Route: 048
  6. SANDOSTATIN LAR DEPOT [Suspect]
     Active Substance: OCTREOTIDE ACETATE
     Indication: PITUITARY TUMOUR BENIGN
     Dosage: 30 MG, QMO
     Route: 030
     Dates: start: 20120924
  7. GRAVOL [Concomitant]
     Active Substance: DIMENHYDRINATE
     Indication: PRODUCT USED FOR UNKNOWN INDICATION
     Route: 065
  8. HYDROCORTISONE. [Concomitant]
     Active Substance: HYDROCORTISONE
     Indication: PRODUCT USED FOR UNKNOWN INDICATION
     Dosage: 3 DF, QD
     Route: 048
     Dates: start: 201211
  9. TRAMADOL. [Concomitant]
     Active Substance: TRAMADOL
     Indication: PRODUCT USED FOR UNKNOWN INDICATION
     Route: 065
  10. VOLTAREN [Concomitant]
     Active Substance: DICLOFENAC SODIUM
     Indication: PRODUCT USED FOR UNKNOWN INDICATION
     Route: 065
  11. SANDOSTATIN LAR DEPOT [Suspect]
     Active Substance: OCTREOTIDE ACETATE
     Dosage: UNK
     Route: 030
     Dates: start: 20190604
  12. LEVOTIROXINA [Concomitant]
     Active Substance: LEVOTHYROXINE
     Indication: HYPOTHYROIDISM
     Dosage: 2 UG, QD
     Route: 065
  13. SANDOSTATIN LAR DEPOT [Suspect]
     Active Substance: OCTREOTIDE ACETATE
     Indication: ACROMEGALY
     Dosage: UNK UNK, QMO
     Route: 030
     Dates: start: 201209
  14. ENALAPRIL [Concomitant]
     Active Substance: ENALAPRIL
     Indication: HYPERTENSION
     Dosage: 20 MG, QD
     Route: 048
     Dates: start: 2014
  15. SANDOSTATIN LAR DEPOT [Suspect]
     Active Substance: OCTREOTIDE ACETATE
     Dosage: UNK
     Route: 030
     Dates: start: 20190312
  16. VITAMIN D [Concomitant]
     Active Substance: VITAMIN D NOS
     Indication: PRODUCT USED FOR UNKNOWN INDICATION
     Dosage: 1 DF, QD
     Route: 048

REACTIONS (55)
  - Epistaxis [Recovered/Resolved]
  - Rhinitis allergic [Unknown]
  - Fistula [Recovered/Resolved]
  - Hyperhidrosis [Unknown]
  - Headache [Recovered/Resolved]
  - Biliary colic [Unknown]
  - Ovarian neoplasm [Unknown]
  - Bradycardia [Unknown]
  - Dysgeusia [Unknown]
  - Muscle spasms [Unknown]
  - Tremor [Unknown]
  - Vomiting [Recovered/Resolved]
  - Haematochezia [Unknown]
  - Arthropathy [Unknown]
  - Arthralgia [Unknown]
  - Capillary fragility [Unknown]
  - Feeling hot [Unknown]
  - Asthenia [Unknown]
  - Frequent bowel movements [Unknown]
  - Diarrhoea [Recovered/Resolved]
  - Uterine leiomyoma [Unknown]
  - Gastrointestinal sounds abnormal [Recovered/Resolved]
  - Discomfort [Recovered/Resolved]
  - Eye pain [Unknown]
  - Abdominal discomfort [Unknown]
  - Abnormal faeces [Unknown]
  - Disorientation [Unknown]
  - Secretion discharge [Unknown]
  - Back pain [Unknown]
  - Uterine haemorrhage [Unknown]
  - Back pain [Recovered/Resolved]
  - Crying [Recovered/Resolved]
  - Anorectal discomfort [Not Recovered/Not Resolved]
  - Body height decreased [Unknown]
  - Cholelithiasis [Unknown]
  - Steatorrhoea [Unknown]
  - Gastrointestinal inflammation [Recovered/Resolved]
  - Malaise [Unknown]
  - Decreased appetite [Unknown]
  - Blood triglycerides increased [Unknown]
  - Feeling abnormal [Unknown]
  - Blister [Unknown]
  - Cow^s milk intolerance [Unknown]
  - Fatigue [Unknown]
  - Vomiting [Unknown]
  - Weight decreased [Unknown]
  - Diarrhoea [Unknown]
  - Joint injury [Unknown]
  - Nasal discomfort [Unknown]
  - Nausea [Recovered/Resolved]
  - Brain neoplasm [Unknown]
  - Neoplasm [Unknown]
  - Pain [Unknown]
  - Hormone level abnormal [Recovering/Resolving]
  - Rhinorrhoea [Unknown]

NARRATIVE: CASE EVENT DATE: 201806
